FAERS Safety Report 4531923-0 (Version None)
Quarter: 2004Q4

REPORT INFORMATION
  Report Type: 
  Country: None (occurrence: None)
  Receive Date: 20041216
  Receipt Date: 20041203
  Transmission Date: 20050328
  Serious: Yes (Life-Threatening, Hospitalization, Disabling, Other)
  Sender: FDA-Public Use
  Company Number: 200411935BWH

PATIENT
  Age: 20 Year
  Sex: Female

DRUGS (6)
  1. AVELOX [Suspect]
     Indication: SINUS DISORDER
     Dosage: 400 MG, TOTAL DAILY, ORAL
     Route: 048
     Dates: start: 20031120
  2. ORTHO TRI-CYCLEN [Concomitant]
  3. RHINOCORT [Concomitant]
  4. ZOMIG [Concomitant]
  5. SUDAFED S.A. [Concomitant]
  6. ADVIL [Concomitant]

REACTIONS (30)
  - ANAPHYLACTIC REACTION [None]
  - ANOXIC ENCEPHALOPATHY [None]
  - APALLIC SYNDROME [None]
  - APNOEA [None]
  - BRAIN DAMAGE [None]
  - BRAIN OEDEMA [None]
  - BRONCHIAL OBSTRUCTION [None]
  - BRONCHITIS BACTERIAL [None]
  - CARDIO-RESPIRATORY ARREST [None]
  - COMA [None]
  - DIFFICULTY IN WALKING [None]
  - DISSEMINATED INTRAVASCULAR COAGULATION [None]
  - DYSPHAGIA [None]
  - GRAND MAL CONVULSION [None]
  - HEART RATE INCREASED [None]
  - HYPERGLYCAEMIA [None]
  - HYPOKALAEMIA [None]
  - LIVER DISORDER [None]
  - LOSS OF CONSCIOUSNESS [None]
  - MOVEMENT DISORDER [None]
  - MUSCLE RIGIDITY [None]
  - MYDRIASIS [None]
  - NERVOUS SYSTEM DISORDER [None]
  - PARALYSIS [None]
  - PNEUMOTHORAX [None]
  - PSEUDOMONAL BACTERAEMIA [None]
  - RESPIRATORY FAILURE [None]
  - SHOCK [None]
  - SPEECH DISORDER [None]
  - STAPHYLOCOCCAL INFECTION [None]
